FAERS Safety Report 20120813 (Version 1)
Quarter: 2021Q4

REPORT INFORMATION
  Report Type: Report from Study
  Country: CA (occurrence: CA)
  Receive Date: 20211126
  Receipt Date: 20211126
  Transmission Date: 20220303
  Serious: Yes (Hospitalization)
  Sender: FDA-Public Use
  Company Number: CA-ABBVIE-21K-028-4136047-00

PATIENT
  Sex: Male

DRUGS (2)
  1. RINVOQ [Suspect]
     Active Substance: UPADACITINIB
     Indication: Rheumatoid arthritis
     Route: 048
     Dates: start: 20210818
  2. METHOTREXATE [Concomitant]
     Active Substance: METHOTREXATE
     Indication: Rheumatoid arthritis
     Route: 058

REACTIONS (5)
  - Suicide attempt [Recovering/Resolving]
  - Intentional self-injury [Recovering/Resolving]
  - Psychotic disorder [Unknown]
  - Anxiety [Unknown]
  - Suture insertion [Unknown]

NARRATIVE: CASE EVENT DATE: 20210101
